FAERS Safety Report 4479993-2 (Version None)
Quarter: 2004Q3

REPORT INFORMATION
  Report Type: 
  Country: None (occurrence: None)
  Receive Date: 20040930
  Receipt Date: 20040730
  Transmission Date: 20050211
  Serious: No
  Sender: FDA-Public Use
  Company Number: 200410210BBE

PATIENT
  Age: 48 Year
  Sex: Female

DRUGS (2)
  1. GAMUNEX [Suspect]
     Indication: HYPOGAMMAGLOBULINAEMIA
     Dosage: 50 G, Q1MON, INTRAVENOUS
     Route: 042
     Dates: start: 20040729
  2. GAMUNEX [Suspect]

REACTIONS (2)
  - ANXIETY [None]
  - PAIN [None]
